FAERS Safety Report 8510245-7 (Version None)
Quarter: 2012Q3

REPORT INFORMATION
  Report Type: 
  Country: None (occurrence: None)
  Receive Date: 20120713
  Receipt Date: 20120710
  Transmission Date: 20120928
  Serious: Yes (Hospitalization)
  Sender: FDA-Public Use
  Company Number: US-CELGENEUS-163-20785-12030585

PATIENT
  Sex: Female

DRUGS (3)
  1. THALOMID [Suspect]
     Dosage: 50 MILLIGRAM
     Route: 048
     Dates: start: 20100501, end: 20100101
  2. THALOMID [Suspect]
     Dosage: 50 MILLIGRAM
     Route: 048
     Dates: start: 20110601, end: 20110101
  3. THALOMID [Suspect]
     Dosage: 50 MILLIGRAM
     Route: 048
     Dates: start: 20120201

REACTIONS (1)
  - HIP DYSPLASIA [None]
